FAERS Safety Report 4668983-2 (Version None)
Quarter: 2005Q2

REPORT INFORMATION
  Report Type: 
  Country: None (occurrence: None)
  Receive Date: 20050523
  Receipt Date: 20050512
  Transmission Date: 20051028
  Serious: Yes (Life-Threatening, Other)
  Sender: FDA-Public Use
  Company Number: BE-GLAXOSMITHKLINE-B0380833A

PATIENT
  Age: 47 Year
  Sex: Female
  Weight: 50 kg

DRUGS (2)
  1. GW679769 [Suspect]
     Dosage: 100MG PER DAY
     Route: 048
     Dates: start: 20050511
  2. ONDANSETRON [Suspect]
     Dosage: 4MG PER DAY
     Route: 042
     Dates: start: 20050511

REACTIONS (2)
  - HAEMORRHAGE [None]
  - SHOCK HAEMORRHAGIC [None]
